FAERS Safety Report 9968587 (Version 1)
Quarter: 2014Q1

REPORT INFORMATION
  Report Type: Spontaneous
  Country: US (occurrence: US)
  Receive Date: 20140306
  Receipt Date: 20140306
  Transmission Date: 20141002
  Serious: No
  Sender: FDA-Public Use
  Company Number: US-ABBVIE-13P-163-1142616-00

PATIENT
  Age: 49 Year
  Sex: Female
  Weight: 68.1 kg

DRUGS (22)
  1. HUMIRA [Suspect]
     Indication: PSORIASIS
     Dates: start: 20130823, end: 20130823
  2. HUMIRA [Suspect]
     Indication: PSORIATIC ARTHROPATHY
  3. MARINOL [Concomitant]
     Indication: PRODUCT USED FOR UNKNOWN INDICATION
  4. MELATONIN [Concomitant]
     Indication: INSOMNIA
  5. AMBIEN [Concomitant]
     Indication: INSOMNIA
  6. FLUCONAZOLE [Concomitant]
     Indication: PSORIASIS
  7. MORPHINE [Concomitant]
     Indication: PAIN
  8. DILAUDID [Concomitant]
     Indication: PAIN
  9. LACTULOSE [Concomitant]
     Indication: IMPAIRED GASTRIC EMPTYING
  10. SINGULAIR [Concomitant]
     Indication: ASTHMA
  11. ALBUTEROL [Concomitant]
     Indication: ASTHMA
  12. ALBUTEROL [Concomitant]
     Indication: ASTHMA
     Route: 055
  13. PLAVIX [Concomitant]
     Indication: PROPHYLAXIS
  14. MIRALAX [Concomitant]
     Indication: CONSTIPATION
  15. SENNA-S [Concomitant]
     Indication: CONSTIPATION
  16. VALIUM [Concomitant]
     Indication: ANXIETY
  17. ZANAFLEX [Concomitant]
     Indication: MUSCLE RELAXANT THERAPY
  18. NEURONTIN [Concomitant]
     Indication: DIABETIC NEUROPATHY
  19. METFORMIN [Concomitant]
     Indication: DIABETES MELLITUS
  20. METOPROLOL [Concomitant]
     Indication: HYPERTENSION
  21. LISINOPRIL [Concomitant]
     Indication: HYPERTENSION
  22. NORVASC [Concomitant]
     Indication: HYPERTENSION

REACTIONS (8)
  - Lethargy [Not Recovered/Not Resolved]
  - Pollakiuria [Not Recovered/Not Resolved]
  - Vision blurred [Not Recovered/Not Resolved]
  - Increased upper airway secretion [Not Recovered/Not Resolved]
  - Insomnia [Not Recovered/Not Resolved]
  - Cough [Not Recovered/Not Resolved]
  - Headache [Not Recovered/Not Resolved]
  - Nausea [Recovered/Resolved]
